FAERS Safety Report 4439593-7 (Version None)
Quarter: 2004Q3

REPORT INFORMATION
  Report Type: 
  Country: None (occurrence: None)
  Receive Date: 20040830
  Receipt Date: 20040818
  Transmission Date: 20050211
  Serious: Yes (Other)
  Sender: FDA-Public Use
  Company Number: 2004057342

PATIENT
  Age: 20 Year
  Sex: Female
  Weight: 67.1324 kg

DRUGS (2)
  1. BENADRYL CREAM EXTRA STRENGTH (DIPHENHYDRAMINE, ZINC ACETATE) [Suspect]
     Indication: RASH
     Dosage: LESS THAN A DIME-SIZED
     Dates: start: 20040801
  2. CILEST (ETHINYLESTRADIOL, NORGESTIMATE) [Concomitant]

REACTIONS (3)
  - DERMATITIS [None]
  - RASH [None]
  - SECRETION DISCHARGE [None]
